FAERS Safety Report 9470630 (Version 1)
Quarter: 2013Q3

REPORT INFORMATION
  Report Type: Spontaneous
  Country: US (occurrence: None)
  Receive Date: 20130820
  Receipt Date: 20130820
  Transmission Date: 20140515
  Serious: No
  Sender: FDA-Public Use
  Company Number: None

PATIENT
  Sex: 0

DRUGS (5)
  1. ONGLYZA [Suspect]
     Indication: TYPE 2 DIABETES MELLITUS
     Dosage: ONE A DAY.
     Route: 048
     Dates: start: 20100911, end: 20130608
  2. METFORMIN [Concomitant]
  3. GLIMEPRIDE [Concomitant]
  4. APPREDEEM [Concomitant]
  5. TRADJENTA [Concomitant]

REACTIONS (4)
  - Hyperhidrosis [None]
  - Paraesthesia [None]
  - Rash erythematous [None]
  - Pruritus [None]
